FAERS Safety Report 9112862 (Version 1)
Quarter: 2013Q1

REPORT INFORMATION
  Report Type: Spontaneous
  Country: US (occurrence: US)
  Receive Date: 20130211
  Receipt Date: 20130211
  Transmission Date: 20140127
  Serious: No
  Sender: FDA-Public Use
  Company Number: US-009507513-1302USA003790

PATIENT
  Age: 62 Year
  Sex: Female

DRUGS (3)
  1. AZASITE [Suspect]
     Dosage: UNK
     Route: 031
     Dates: start: 20130116
  2. LOTEMAX [Concomitant]
  3. CRESTOR [Concomitant]

REACTIONS (2)
  - Eye irritation [Unknown]
  - Product quality issue [Unknown]
